FAERS Safety Report 4471381-8 (Version None)
Quarter: 2004Q4

REPORT INFORMATION
  Report Type: 
  Country: None (occurrence: None)
  Receive Date: 20041012
  Receipt Date: 20040930
  Transmission Date: 20050328
  Serious: Yes (Life-Threatening, Other)
  Sender: FDA-Public Use
  Company Number: JP-BRISTOL-MYERS SQUIBB COMPANY-12717047

PATIENT
  Age: 66 Year
  Sex: Male

DRUGS (8)
  1. PRAVASTATINE TABS [Suspect]
     Route: 048
     Dates: start: 20040214
  2. ITRIZOLE [Suspect]
     Indication: ONYCHOMYCOSIS
     Route: 048
     Dates: start: 20040531, end: 20040614
  3. NORVASC [Concomitant]
  4. RYTHMODAN [Concomitant]
     Route: 048
     Dates: start: 20040108
  5. BENIDIPINE HCL [Concomitant]
     Route: 048
     Dates: start: 20040108
  6. ASPIRIN [Concomitant]
     Route: 048
     Dates: start: 20040214
  7. BISOPROLOL FUMARATE [Concomitant]
     Route: 048
     Dates: start: 20040214
  8. VALSARTAN [Concomitant]
     Route: 048
     Dates: start: 20040214

REACTIONS (8)
  - DIZZINESS [None]
  - FALL [None]
  - HYPERGLYCAEMIA [None]
  - HYPERHIDROSIS [None]
  - HYPERTENSION [None]
  - LOSS OF CONSCIOUSNESS [None]
  - MOTION SICKNESS [None]
  - SHOCK [None]
